FAERS Safety Report 22105913 (Version 3)
Quarter: 2023Q2

REPORT INFORMATION
  Report Type: Spontaneous
  Country: US (occurrence: US)
  Receive Date: 20230317
  Receipt Date: 20230430
  Transmission Date: 20230721
  Serious: Yes (Death, Other)
  Sender: FDA-Public Use
  Company Number: US-SA-2023SA080182

PATIENT
  Age: 85 Year
  Sex: Male

DRUGS (3)
  1. ELOXATIN [Suspect]
     Active Substance: OXALIPLATIN
     Indication: Product used for unknown indication
     Dosage: UNK
  2. TRIFLURIDINE [Suspect]
     Active Substance: TRIFLURIDINE
     Indication: Colon cancer
     Dosage: 20 MG, Q12H
     Route: 048
     Dates: start: 20221129
  3. TRIFLURIDINE [Suspect]
     Active Substance: TRIFLURIDINE
     Dosage: 60 MG, Q12H
     Route: 048

REACTIONS (7)
  - Death [Fatal]
  - Hernia [Unknown]
  - Musculoskeletal pain [Unknown]
  - White blood cell count decreased [Unknown]
  - Drug hypersensitivity [Unknown]
  - Peripheral coldness [Unknown]
  - Swelling [Unknown]
